FAERS Safety Report 9420709 (Version 1)
Quarter: 2013Q3

REPORT INFORMATION
  Report Type: Spontaneous
  Country: US (occurrence: US)
  Receive Date: 20130725
  Receipt Date: 20130725
  Transmission Date: 20140515
  Serious: No
  Sender: FDA-Public Use
  Company Number: US-ABBOTT-13P-163-1075455-00

PATIENT
  Age: 62 Year
  Sex: Female
  Weight: 69.01 kg

DRUGS (9)
  1. SYNTHROID [Suspect]
     Indication: HYPOTHYROIDISM
     Dates: start: 2006
  2. SYNTHROID [Suspect]
  3. INSULIN [Concomitant]
     Indication: DIABETES MELLITUS
  4. EXFORGE [Concomitant]
     Indication: HYPERTENSION
  5. ATENOLOL [Concomitant]
     Indication: HYPERTENSION
  6. VICTOZA [Concomitant]
     Indication: DIABETES MELLITUS
  7. ELAVIL [Concomitant]
     Indication: PRODUCT USED FOR UNKNOWN INDICATION
  8. CHANTIX [Concomitant]
     Indication: EX-TOBACCO USER
  9. CALCIUM [Concomitant]
     Indication: PRODUCT USED FOR UNKNOWN INDICATION

REACTIONS (5)
  - Product packaging issue [Unknown]
  - Dizziness [Recovering/Resolving]
  - Urinary tract infection [Recovered/Resolved]
  - Vulvovaginal mycotic infection [Recovering/Resolving]
  - Blood thyroid stimulating hormone increased [Not Recovered/Not Resolved]
